FAERS Safety Report 20200926 (Version 5)
Quarter: 2022Q2

REPORT INFORMATION
  Report Type: Report from Study
  Country: US (occurrence: US)
  Receive Date: 20211217
  Receipt Date: 20220623
  Transmission Date: 20220720
  Serious: Yes (Hospitalization, Other)
  Sender: FDA-Public Use
  Company Number: US-BIOGEN-2021BI01077273

PATIENT
  Age: 49 Year
  Sex: Female
  Weight: 156 kg

DRUGS (24)
  1. TYSABRI [Suspect]
     Active Substance: NATALIZUMAB
     Indication: Multiple sclerosis
     Route: 042
     Dates: start: 20180118, end: 20220107
  2. TYLENOL [Concomitant]
     Active Substance: ACETAMINOPHEN
     Indication: Headache
     Route: 048
  3. TYLENOL [Concomitant]
     Active Substance: ACETAMINOPHEN
     Dosage: GIVE AT 10AM BEFORE THERAPY; 3GRAMS MAX DAILY
     Route: 048
  4. SYMMETREL [Concomitant]
     Active Substance: AMANTADINE HYDROCHLORIDE
     Indication: Product used for unknown indication
     Dosage: 50 MG/5ML
     Route: 048
  5. LAC-HYDRIN [Concomitant]
     Active Substance: AMMONIUM LACTATE
     Indication: Dry skin
     Dosage: 12% APPLY EXTERNALLY TO AFFECTED AREA WELL
     Route: 061
  6. VITAMIN C [Concomitant]
     Active Substance: ASCORBIC ACID
     Indication: Product used for unknown indication
     Dosage: WHILE INDWELLING CATHETER IN PLACE
     Route: 048
  7. DULCOLAX NOS [Concomitant]
     Active Substance: BISACODYL OR DOCUSATE SODIUM
     Indication: Constipation
     Dosage: BOWEL PROTOCOL 3
     Route: 054
  8. NEURONTIN [Concomitant]
     Active Substance: GABAPENTIN
     Indication: Product used for unknown indication
     Route: 048
     Dates: start: 20200514
  9. SYNTHROID [Concomitant]
     Active Substance: LEVOTHYROXINE SODIUM
     Indication: Product used for unknown indication
     Route: 048
     Dates: start: 20200514
  10. LITHIUM [Concomitant]
     Active Substance: LITHIUM
     Indication: Bipolar disorder
     Route: 048
     Dates: start: 20200514
  11. LITHIUM [Concomitant]
     Active Substance: LITHIUM
     Dosage: 900-1200 MG
     Route: 065
     Dates: start: 2015
  12. MILK OF MAGNESIA [Concomitant]
     Active Substance: MAGNESIUM HYDROXIDE
     Indication: Constipation
     Dosage: 400MG/5ML; GIVE IF NO BM IN LAST 3 DAYS, BOWEL PROTOCOL 2
     Route: 048
  13. TOPROL XL [Concomitant]
     Active Substance: METOPROLOL SUCCINATE
     Indication: Hypertension
     Dosage: CALL DR IF BP IS LESS THAN 90/60 OR OVER 170/100; OR IF PULSE IS LESS THAN 60. CHECK DAILY.
     Route: 048
     Dates: end: 20220314
  14. FLEET MINERAL OIL [Concomitant]
     Active Substance: MINERAL OIL
     Indication: Constipation
     Dosage: BOWEL PROTOCOL 4
     Route: 054
  15. DITROPAN [Concomitant]
     Active Substance: OXYBUTYNIN CHLORIDE
     Indication: Bladder spasm
     Route: 048
  16. INVEGA [Concomitant]
     Active Substance: PALIPERIDONE
     Indication: Bipolar disorder
     Dosage: WITH BREAKFAST
     Route: 048
     Dates: start: 20200514
  17. INVEGA [Concomitant]
     Active Substance: PALIPERIDONE
     Dosage: AT BEDTIIME
     Route: 048
     Dates: start: 20200514
  18. INVEGA [Concomitant]
     Active Substance: PALIPERIDONE
     Route: 065
     Dates: start: 2015
  19. XARELTO [Concomitant]
     Active Substance: RIVAROXABAN
     Indication: Thrombosis prophylaxis
     Route: 048
     Dates: end: 20220314
  20. SENNA PLUS [Concomitant]
     Active Substance: DOCUSATE SODIUM\SENNOSIDES\SENNOSIDES A AND B
     Indication: Constipation
     Dosage: 8.6-50 MG/TAB
     Route: 048
  21. ALDACTONE [Concomitant]
     Active Substance: SPIRONOLACTONE
     Indication: Oedema
     Route: 048
  22. DEMADEX [Concomitant]
     Active Substance: TORSEMIDE
     Indication: Product used for unknown indication
     Route: 048
     Dates: start: 20200514
  23. MIRALAX [Concomitant]
     Active Substance: POLYETHYLENE GLYCOL 3350
     Indication: Constipation
     Dosage: AS NEEDED FOR CONSTIPATION
     Route: 048
  24. THORAZINE [Concomitant]
     Active Substance: CHLORPROMAZINE
     Indication: Sleep disorder
     Route: 065

REACTIONS (7)
  - Fall [Recovered/Resolved]
  - Haematoma [Unknown]
  - Gangrene [Unknown]
  - Cellulitis [Unknown]
  - Thoracic vertebral fracture [Unknown]
  - Mobility decreased [Unknown]
  - Central nervous system lesion [Unknown]

NARRATIVE: CASE EVENT DATE: 20210601
